FAERS Safety Report 6946195-7 (Version None)
Quarter: 2010Q3

REPORT INFORMATION
  Report Type: 
  Country: None (occurrence: None)
  Receive Date: 20100819
  Receipt Date: 20100804
  Transmission Date: 20110219
  Serious: Yes (Other)
  Sender: FDA-Public Use
  Company Number: AUR-APL-2010-02032

PATIENT
  Sex: Male

DRUGS (1)
  1. PENICILLIN V POTASSIUM [Suspect]

REACTIONS (2)
  - GASTROINTESTINAL MUCOSAL EXFOLIATION [None]
  - MALAISE [None]
